FAERS Safety Report 5982998-3 (Version None)
Quarter: 2008Q4

REPORT INFORMATION
  Report Type: 
  Country: None (occurrence: None)
  Receive Date: 20081205
  Receipt Date: 20081205
  Transmission Date: 20090506
  Serious: Yes (Other)
  Sender: FDA-Public Use
  Company Number: None

PATIENT
  Age: 75 Year
  Sex: Female
  Weight: 58.9676 kg

DRUGS (1)
  1. ISOSORBIDE MONONITRATE [Suspect]
     Indication: ATRIOVENTRICULAR BLOCK
     Dosage: 120 MG ONCE DAILY PO
     Route: 048
     Dates: start: 20081012, end: 20081126

REACTIONS (6)
  - ASTHENIA [None]
  - CHEST DISCOMFORT [None]
  - FATIGUE [None]
  - PAIN IN EXTREMITY [None]
  - PALPITATIONS [None]
  - PRODUCT QUALITY ISSUE [None]
